FAERS Safety Report 5095052-2 (Version None)
Quarter: 2006Q3

REPORT INFORMATION
  Report Type: 
  Country: None (occurrence: None)
  Receive Date: 20060830
  Receipt Date: 20060809
  Transmission Date: 20061208
  Serious: Yes (Hospitalization, Other)
  Sender: FDA-Public Use
  Company Number: 2005141763

PATIENT
  Age: 48 Year
  Sex: Male
  Weight: 68.0396 kg

DRUGS (4)
  1. BEXTRA [Suspect]
     Indication: SPONDYLITIS
     Dosage: 20 MG (20 MG, 1 IN 1 D),
     Dates: start: 20031125
  2. TOPROL-XL [Concomitant]
  3. XANAX [Concomitant]
  4. PREVACID [Concomitant]

REACTIONS (22)
  - BALANCE DISORDER [None]
  - BLOOD CHOLESTEROL INCREASED [None]
  - BLOOD TRIGLYCERIDES INCREASED [None]
  - BRAIN STEM SYNDROME [None]
  - CAROTID ARTERY DISEASE [None]
  - CEREBRAL ISCHAEMIA [None]
  - CEREBROVASCULAR ACCIDENT [None]
  - DYSARTHRIA [None]
  - EJECTION FRACTION DECREASED [None]
  - ELECTROCARDIOGRAM ST-T CHANGE [None]
  - ELECTROENCEPHALOGRAM ABNORMAL [None]
  - EXTRASYSTOLES [None]
  - GAIT DISTURBANCE [None]
  - HEADACHE [None]
  - INTRACARDIAC THROMBUS [None]
  - LOW DENSITY LIPOPROTEIN INCREASED [None]
  - NECK PAIN [None]
  - SUPRAVENTRICULAR EXTRASYSTOLES [None]
  - TRANSIENT ISCHAEMIC ATTACK [None]
  - TRICUSPID VALVE INCOMPETENCE [None]
  - VENTRICULAR DYSFUNCTION [None]
  - VENTRICULAR HYPERTROPHY [None]
